FAERS Safety Report 20767497 (Version 2)
Quarter: 2022Q2

REPORT INFORMATION
  Report Type: Report from Study
  Country: US (occurrence: US)
  Receive Date: 20220429
  Receipt Date: 20220604
  Transmission Date: 20220721
  Serious: No
  Sender: FDA-Public Use
  Company Number: US-SA-SAC20220428001025

PATIENT
  Age: 61 Year
  Sex: Male

DRUGS (6)
  1. DUPIXENT [Suspect]
     Active Substance: DUPILUMAB
     Indication: Dermatitis atopic
     Dosage: 300 MG, QOW
     Route: 058
     Dates: start: 20210723
  2. CLOBETASOL [Concomitant]
     Active Substance: CLOBETASOL
  3. IBU [Concomitant]
     Active Substance: IBUPROFEN
  4. NIFEDIPINE [Concomitant]
     Active Substance: NIFEDIPINE
  5. PREDNISONE [Concomitant]
     Active Substance: PREDNISONE
  6. TACROLIMUS [Concomitant]
     Active Substance: TACROLIMUS

REACTIONS (2)
  - Oral herpes [Unknown]
  - Dermatitis atopic [Unknown]
